FAERS Safety Report 24662938 (Version 1)
Quarter: 2024Q4

REPORT INFORMATION
  Report Type: Spontaneous
  Country: US (occurrence: US)
  Receive Date: 20241126
  Receipt Date: 20241126
  Transmission Date: 20250114
  Serious: No
  Sender: STRIDES
  Company Number: US-STRIDES ARCOLAB LIMITED-2023SP017509

PATIENT

DRUGS (5)
  1. PROPRANOLOL [Suspect]
     Active Substance: PROPRANOLOL HYDROCHLORIDE
     Indication: Goitre
     Dosage: 2 MILLIGRAM/KILOGRAM PER DAY
     Route: 065
  2. PROPRANOLOL [Suspect]
     Active Substance: PROPRANOLOL HYDROCHLORIDE
     Indication: Exophthalmos
  3. METHIMAZOLE [Concomitant]
     Active Substance: METHIMAZOLE
     Indication: Goitre
     Dosage: 0.5 MILLIGRAM/KILOGRAM PER DAY (INITIALLY FOR ONE WEEK )
     Route: 065
  4. METHIMAZOLE [Concomitant]
     Active Substance: METHIMAZOLE
     Indication: Exophthalmos
     Dosage: 0.25 MILLIGRAM/KILOGRAM PER DAY; GRADUAL REDUCTION
     Route: 065
  5. METHIMAZOLE [Concomitant]
     Active Substance: METHIMAZOLE
     Dosage: UNK, ADJUSTED DOSE EVERY OTHER DAY
     Route: 065

REACTIONS (1)
  - Off label use [Unknown]
